FAERS Safety Report 15955426 (Version 2)
Quarter: 2019Q1

REPORT INFORMATION
  Report Type: Report from Study
  Country: DE (occurrence: DE)
  Receive Date: 20190213
  Receipt Date: 20190218
  Transmission Date: 20190417
  Serious: Yes (Hospitalization)
  Sender: FDA-Public Use
  Company Number: DE-ROCHE-2258782

PATIENT
  Age: 57 Year
  Sex: Female
  Weight: 84.5 kg

DRUGS (6)
  1. PACLITAXEL. [Suspect]
     Active Substance: PACLITAXEL
     Indication: BREAST CANCER
     Dosage: DATE OF LAST DOSE OF PACLITAXEL PRIOR TO SAE: 19/JAN/2019
     Route: 042
     Dates: start: 20181113, end: 20190129
  2. PERTUZUMAB. [Suspect]
     Active Substance: PERTUZUMAB
     Indication: BREAST CANCER
     Dosage: DATE OF LAST DOSE OF PERTUZUMAB PRIOR TO SAE: 10/JAN/2019
     Route: 042
     Dates: start: 20181112
  3. TRASTUZUMAB. [Suspect]
     Active Substance: TRASTUZUMAB
     Indication: BREAST CANCER
     Dosage: DATE OF LAST DOSE OF TRASTUZUMAB PRIOR TO SAE: 10/JAN/2019
     Route: 042
     Dates: start: 20181112
  4. INTERFERON BETA 1A [Concomitant]
     Active Substance: INTERFERON BETA-1A
     Route: 065
  5. L-THYROXINE [Concomitant]
     Active Substance: LEVOTHYROXINE
     Route: 065
  6. METOPROLOL. [Concomitant]
     Active Substance: METOPROLOL
     Route: 065

REACTIONS (1)
  - Lung infection [Recovered/Resolved]

NARRATIVE: CASE EVENT DATE: 20190120
